FAERS Safety Report 7115746-4 (Version None)
Quarter: 2010Q4

REPORT INFORMATION
  Report Type: 
  Country: None (occurrence: None)
  Receive Date: 20101122
  Receipt Date: 20101111
  Transmission Date: 20110411
  Serious: Yes (Other)
  Sender: FDA-Public Use
  Company Number: US-AMGEN-QUU435577

PATIENT

DRUGS (3)
  1. NPLATE [Suspect]
     Indication: IDIOPATHIC THROMBOCYTOPENIC PURPURA
     Dosage: UNK UNK, UNK
     Dates: start: 20100831
  2. NPLATE [Suspect]
     Dates: start: 20100101
  3. CORTICOSTEROID NOS [Concomitant]

REACTIONS (2)
  - HAEMATOLOGICAL MALIGNANCY [None]
  - RASH GENERALISED [None]
